FAERS Safety Report 9377808 (Version 1)
Quarter: 2013Q2

REPORT INFORMATION
  Report Type: Spontaneous
  Country: US (occurrence: None)
  Receive Date: 20130625
  Receipt Date: 20130625
  Transmission Date: 20140414
  Serious: Yes (Hospitalization, Other)
  Sender: FDA-Public Use
  Company Number: ADR-2013-01045

PATIENT
  Age: 52 Year
  Sex: Female

DRUGS (6)
  1. BACLOFEN INTRATHECAL [Suspect]
  2. CLONIDINE [Concomitant]
  3. BUPIVACAINE [Concomitant]
  4. MORPHINE [Concomitant]
  5. FENTANYL (INTRATHECAL) [Concomitant]
  6. OTHER ORALS [Concomitant]

REACTIONS (5)
  - Drug withdrawal syndrome [None]
  - Device kink [None]
  - Device dislocation [None]
  - Pain [None]
  - Incorrect dose administered [None]
